FAERS Safety Report 8049229-4 (Version None)
Quarter: 2011Q4

REPORT INFORMATION
  Report Type: 
  Country: None (occurrence: None)
  Receive Date: 20111209
  Receipt Date: 20111019
  Transmission Date: 20120403
  Serious: No
  Sender: FDA-Public Use
  Company Number: TH-2011-00451

PATIENT
  Sex: Male

DRUGS (2)
  1. TESTOSTERONE [Concomitant]
  2. EGRIFTA [Suspect]
     Indication: LIPODYSTROPHY ACQUIRED
     Dosage: 1 IN 1 D

REACTIONS (3)
  - DYSGEUSIA [None]
  - PHARYNGEAL OEDEMA [None]
  - DYSPNOEA [None]
